FAERS Safety Report 4382839-4 (Version None)
Quarter: 2004Q2

REPORT INFORMATION
  Report Type: 
  Country: None (occurrence: None)
  Receive Date: 20040603
  Receipt Date: 20040225
  Transmission Date: 20050107
  Serious: Yes (Other)
  Sender: FDA-Public Use
  Company Number: 200411503US

PATIENT

DRUGS (1)
  1. LOVENOX [Suspect]

REACTIONS (1)
  - HAEMORRHAGE [None]
